FAERS Safety Report 6636605-7 (Version None)
Quarter: 2010Q1

REPORT INFORMATION
  Report Type: 
  Country: None (occurrence: None)
  Receive Date: 20100316
  Receipt Date: 20100309
  Transmission Date: 20100710
  Serious: Yes (Other)
  Sender: FDA-Public Use
  Company Number: US-GENZYME-FABR-1001235

PATIENT
  Sex: Male

DRUGS (13)
  1. FABRAZYME [Suspect]
     Indication: FABRY'S DISEASE
     Dosage: 35 MG, UNK
     Route: 042
  2. FABRAZYME [Suspect]
     Dosage: 55 MG, Q2W
     Route: 042
  3. FABRAZYME [Suspect]
     Dosage: 1 MG/KG, Q2W
     Route: 042
     Dates: start: 20020301
  4. PROGRAF [Concomitant]
     Indication: DRUG USE FOR UNKNOWN INDICATION
     Dosage: UNK
  5. PREDNISONE [Concomitant]
     Indication: DRUG USE FOR UNKNOWN INDICATION
     Dosage: UNK
  6. VALCYTE [Concomitant]
     Indication: DRUG USE FOR UNKNOWN INDICATION
     Dosage: UNK
  7. FAMOTIDINE [Concomitant]
     Indication: DRUG USE FOR UNKNOWN INDICATION
     Dosage: UNK
  8. BACTRIM [Concomitant]
     Indication: DRUG USE FOR UNKNOWN INDICATION
     Dosage: UNK
  9. AMLODIPINE [Concomitant]
     Indication: DRUG USE FOR UNKNOWN INDICATION
     Dosage: UNK
  10. FUROSEMIDE [Concomitant]
     Indication: DRUG USE FOR UNKNOWN INDICATION
     Dosage: UNK
  11. PROCRIT [Concomitant]
     Indication: DRUG USE FOR UNKNOWN INDICATION
     Dosage: UNK
  12. RAPAMUNE [Concomitant]
     Indication: DRUG USE FOR UNKNOWN INDICATION
     Dosage: UNK
  13. MYFORTIC [Concomitant]
     Indication: DRUG USE FOR UNKNOWN INDICATION
     Dosage: UNK

REACTIONS (1)
  - RENAL FAILURE CHRONIC [None]
